FAERS Safety Report 6773671-2 (Version None)
Quarter: 2010Q2

REPORT INFORMATION
  Report Type: 
  Country: None (occurrence: None)
  Receive Date: 20100617
  Receipt Date: 20100610
  Transmission Date: 20101027
  Serious: Yes (Other)
  Sender: FDA-Public Use
  Company Number: US-BIOGENIDEC-2009BI026404

PATIENT
  Age: 31 Year
  Sex: Female

DRUGS (8)
  1. TYSABRI [Suspect]
     Indication: MULTIPLE SCLEROSIS
     Dosage: BASED ON ULTRASOUND.
     Route: 042
     Dates: start: 20071210, end: 20090707
  2. PRENATAL VITAMINS [Concomitant]
  3. LOVAZA [Concomitant]
  4. POTASSIUM [Concomitant]
  5. MAGNESIUM [Concomitant]
  6. VITAMIN D3 [Concomitant]
  7. ACIDOPHILUS [Concomitant]
  8. CLINDAMYCIN [Concomitant]

REACTIONS (2)
  - BREECH PRESENTATION [None]
  - PREGNANCY [None]
